FAERS Safety Report 17870704 (Version 3)
Quarter: 2020Q2

REPORT INFORMATION
  Report Type: Spontaneous
  Country: JP (occurrence: JP)
  Receive Date: 20200608
  Receipt Date: 20200610
  Transmission Date: 20200714
  Serious: Yes (Other)
  Sender: FDA-Public Use
  Company Number: NVSJ2020JP005542

PATIENT
  Age: 67 Year

DRUGS (1)
  1. EQUMET [Suspect]
     Active Substance: METFORMIN HYDROCHLORIDE\VILDAGLIPTIN
     Indication: TYPE 2 DIABETES MELLITUS
     Dosage: METFORMIN UNKNOWN/VILDAGLIPTIN 50MG
     Route: 048

REACTIONS (1)
  - Pneumonia aspiration [Unknown]
